FAERS Safety Report 7314855-4 (Version None)
Quarter: 2011Q1

REPORT INFORMATION
  Report Type: 
  Country: None (occurrence: None)
  Receive Date: 20110225
  Receipt Date: 20100301
  Transmission Date: 20110831
  Serious: No
  Sender: FDA-Public Use
  Company Number: US-MYLANLABS-2010S1000319

PATIENT
  Age: 22 Year
  Sex: Female

DRUGS (4)
  1. AMNESTEEM [Suspect]
     Indication: ACNE CYSTIC
     Route: 048
     Dates: start: 20091106, end: 20091101
  2. AMNESTEEM [Suspect]
     Route: 048
     Dates: start: 20091101, end: 20100205
  3. IBUPROFEN [Concomitant]
     Indication: HEADACHE
  4. PEPTOBISMOL [Concomitant]
     Dates: start: 20091113

REACTIONS (7)
  - MYALGIA [None]
  - ABDOMINAL PAIN [None]
  - SINUSITIS [None]
  - PYREXIA [None]
  - HEADACHE [None]
  - FAECES DISCOLOURED [None]
  - CHILLS [None]
